FAERS Safety Report 20949867 (Version 1)
Quarter: 2022Q2

REPORT INFORMATION
  Report Type: Spontaneous
  Country: CA (occurrence: CA)
  Receive Date: 20220613
  Receipt Date: 20220613
  Transmission Date: 20220720
  Serious: Yes (Other)
  Sender: FDA-Public Use
  Company Number: CA-SA-SAC20220608000430

PATIENT
  Age: 19 Year
  Sex: Female

DRUGS (11)
  1. DUPIXENT [Suspect]
     Active Substance: DUPILUMAB
     Indication: Dermatitis atopic
     Dosage: 600 MG, 1X
     Route: 058
  2. DUPIXENT [Suspect]
     Active Substance: DUPILUMAB
     Dosage: 300 MG
     Route: 058
  3. COVID-19 VACCINE NOS [Suspect]
     Active Substance: COVID-19 VACCINE NOS
     Indication: COVID-19 immunisation
     Dosage: UNK UNK, 1X
     Route: 065
  4. ESCITALOPRAM OXALATE [Concomitant]
     Active Substance: ESCITALOPRAM OXALATE
     Dosage: 10 MG, QD
     Route: 048
  5. METHOTREXATE [Concomitant]
     Active Substance: METHOTREXATE
     Route: 065
  6. TACROLIMUS [Concomitant]
     Active Substance: TACROLIMUS
     Indication: Dermatitis atopic
     Dosage: UNK UNK, QD
     Route: 061
  7. TOPICORT [Concomitant]
     Active Substance: DESOXIMETASONE
     Dosage: UNK
     Route: 065
  8. BETADERM [Concomitant]
     Active Substance: BETAMETHASONE VALERATE
     Indication: Dermatitis atopic
     Dosage: QD
     Route: 061
  9. CITALOPRAM RANBAXY [CITALOPRAM HYDROCHLORIDE] [Concomitant]
  10. DROSPIRENONE\ETHINYL ESTRADIOL [Concomitant]
     Active Substance: DROSPIRENONE\ETHINYL ESTRADIOL
     Indication: Oral contraception
     Dosage: UNK UNK, QD
     Route: 048
  11. CYCLOSPORINE [Concomitant]
     Active Substance: CYCLOSPORINE

REACTIONS (4)
  - COVID-19 [Recovered/Resolved]
  - Pericarditis [Recovered/Resolved]
  - Quality of life decreased [Recovered/Resolved]
  - Drug ineffective [Recovered/Resolved]
